FAERS Safety Report 8926294 (Version 1)
Quarter: 2012Q4

REPORT INFORMATION
  Report Type: 
  Country: IT (occurrence: IT)
  Receive Date: 20121126
  Receipt Date: 20121126
  Transmission Date: 20130627
  Serious: Yes (Other)
  Sender: FDA-Public Use
  Company Number: PHHY2012IT107596

PATIENT
  Age: 30 Year
  Sex: Female

DRUGS (1)
  1. FTY 720 [Suspect]
     Dosage: UNK
     Dates: start: 200703, end: 200806

REACTIONS (5)
  - Multiple sclerosis relapse [Recovering/Resolving]
  - Central nervous system lesion [Recovering/Resolving]
  - Expanded disability status scale [Recovering/Resolving]
  - Papilloma viral infection [Unknown]
  - Rebound effect [Recovering/Resolving]
